FAERS Safety Report 8985340 (Version 4)
Quarter: 2013Q1

REPORT INFORMATION
  Report Type: Spontaneous
  Country: JP (occurrence: JP)
  Receive Date: 20121226
  Receipt Date: 20130219
  Transmission Date: 20140127
  Serious: Yes (Death, Life-Threatening, Hospitalization)
  Sender: FDA-Public Use
  Company Number: JP-SANOFI-AVENTIS-2012SA092712

PATIENT
  Age: 72 Year
  Sex: Male
  Weight: 57 kg

DRUGS (18)
  1. ONETAXOTERE [Suspect]
     Indication: BREAST CANCER
     Dosage: EVERY 3 WEEKS
     Route: 041
     Dates: start: 20120828, end: 20121030
  2. XELODA [Suspect]
     Indication: BREAST CANCER
     Dosage: STRENGTH: 300 MG?DOSING TWICE + SUSPENSION ONCE
     Route: 048
     Dates: start: 20120828, end: 20121111
  3. TAMSULOSIN [Concomitant]
     Route: 048
  4. VESICARE [Concomitant]
     Route: 048
  5. D ALFA [Concomitant]
     Route: 048
  6. ASPARA-CA [Concomitant]
     Route: 048
  7. PYDOXAL [Concomitant]
  8. BISPHOSPHONATES [Concomitant]
     Route: 048
  9. MAGNESIUM OXIDE [Concomitant]
     Route: 048
  10. PANTOSIN [Concomitant]
  11. LOXOPROFEN [Concomitant]
     Route: 048
  12. OMEPRAZOLE [Concomitant]
  13. ENALAPRIL [Concomitant]
     Route: 048
  14. AMLODIPINE [Concomitant]
     Route: 048
  15. BAYASPIRIN [Concomitant]
     Route: 048
  16. ROSUVASTATIN CALCIUM [Concomitant]
     Route: 048
  17. ARTIST [Concomitant]
     Route: 048
  18. DENOSUMAB [Concomitant]
     Route: 058

REACTIONS (2)
  - Interstitial lung disease [Fatal]
  - Dyspnoea [Fatal]
